FAERS Safety Report 16570914 (Version 1)
Quarter: 2019Q3

REPORT INFORMATION
  Report Type: Spontaneous
  Country: US (occurrence: US)
  Receive Date: 20190712
  Receipt Date: 20190712
  Transmission Date: 20191004
  Serious: No
  Sender: FDA-Public Use
  Company Number: None

PATIENT
  Age: 10 Year
  Sex: Female

DRUGS (3)
  1. STELARA [Suspect]
     Active Substance: USTEKINUMAB
     Indication: PSORIASIS
     Dosage: ?          OTHER FREQUENCY:Q12WKS;?
     Route: 058
     Dates: start: 20190607
  2. PREDNISONE. [Concomitant]
     Active Substance: PREDNISONE
  3. SULFASALASZINE [Concomitant]

REACTIONS (2)
  - Accidental overdose [None]
  - Off label use [None]

NARRATIVE: CASE EVENT DATE: 20190711
